FAERS Safety Report 24878811 (Version 1)
Quarter: 2025Q1

REPORT INFORMATION
  Report Type: Spontaneous
  Country: US (occurrence: US)
  Receive Date: 20250123
  Receipt Date: 20250123
  Transmission Date: 20250409
  Serious: No
  Sender: BAYER HEALTHCARE LLC
  Company Number: US-BAYER-2025A010618

PATIENT
  Age: 75 Year
  Sex: Female

DRUGS (1)
  1. MIRALAX [Suspect]
     Active Substance: POLYETHYLENE GLYCOL 3350
     Indication: Constipation
     Dosage: 1 TEASPOON EVERY DAY
     Route: 048
     Dates: start: 2024, end: 20250121

REACTIONS (3)
  - Diarrhoea [Recovering/Resolving]
  - Incorrect product administration duration [None]
  - Incorrect dose administered [None]

NARRATIVE: CASE EVENT DATE: 20250121
